FAERS Safety Report 16765119 (Version 1)
Quarter: 2019Q3

REPORT INFORMATION
  Report Type: Report from Study
  Country: CA (occurrence: CA)
  Receive Date: 20190903
  Receipt Date: 20190903
  Transmission Date: 20191005
  Serious: Yes (Death, Other)
  Sender: FDA-Public Use
  Company Number: CA-ORION CORPORATION ORION PHARMA-TREX2019-3175

PATIENT
  Age: 64 Year
  Sex: Male
  Weight: 53 kg

DRUGS (8)
  1. HYDROMORPHONE [Concomitant]
     Active Substance: HYDROMORPHONE
     Route: 065
  2. RITUXAN [Suspect]
     Active Substance: RITUXIMAB
     Indication: RHEUMATOID ARTHRITIS
     Route: 042
  3. RITUXAN [Suspect]
     Active Substance: RITUXIMAB
     Route: 042
  4. ASA [Concomitant]
     Active Substance: ASPIRIN
     Route: 065
  5. VITAMIN C [Concomitant]
     Active Substance: ASCORBIC ACID
     Route: 065
  6. METHOTREXATE (TRADE NAME UNKNOWN) [Suspect]
     Active Substance: METHOTREXATE
     Indication: RHEUMATOID ARTHRITIS
     Route: 065
  7. FOLIC ACID. [Concomitant]
     Active Substance: FOLIC ACID
     Route: 065
  8. PREDNISONE. [Concomitant]
     Active Substance: PREDNISONE
     Route: 065

REACTIONS (10)
  - Abdominal discomfort [Fatal]
  - Gastrooesophageal reflux disease [Fatal]
  - Rheumatoid arthritis [Fatal]
  - Blood glucose increased [Fatal]
  - Pain in extremity [Fatal]
  - Toothache [Fatal]
  - Weight decreased [Fatal]
  - Death [Fatal]
  - Myocardial infarction [Fatal]
  - Osteomyelitis [Fatal]
